FAERS Safety Report 4625335-9 (Version None)
Quarter: 2005Q2

REPORT INFORMATION
  Report Type: 
  Country: None (occurrence: None)
  Receive Date: 20050401
  Receipt Date: 20050328
  Transmission Date: 20051028
  Serious: Yes (Other)
  Sender: FDA-Public Use
  Company Number: US-GLAXOSMITHKLINE-A0551463A

PATIENT
  Age: 44 Year
  Sex: Male

DRUGS (6)
  1. WELLBUTRIN XL [Suspect]
     Indication: DEPRESSION
     Route: 048
     Dates: start: 20031201
  2. TESTOSTERONE [Suspect]
     Indication: DRUG USE FOR UNKNOWN INDICATION
  3. ATIVAN [Concomitant]
  4. VIRAMUNE [Concomitant]
  5. VIDEX EC [Concomitant]
  6. FAMVIR [Concomitant]

REACTIONS (4)
  - BLOOD TESTOSTERONE INCREASED [None]
  - GYNAECOMASTIA [None]
  - HAEMATOCRIT INCREASED [None]
  - WEIGHT DECREASED [None]
